FAERS Safety Report 5074618-X (Version None)
Quarter: 2006Q3

REPORT INFORMATION
  Report Type: 
  Country: None (occurrence: None)
  Receive Date: 20060808
  Receipt Date: 20050815
  Transmission Date: 20061208
  Serious: No
  Sender: FDA-Public Use
  Company Number: US-AMGEN-KDL146581

PATIENT
  Sex: Female

DRUGS (4)
  1. PROCRIT [Suspect]
     Indication: ANAEMIA
     Dates: start: 20050315
  2. FOSAMAX [Concomitant]
  3. IBUPROFEN [Concomitant]
  4. ANTIHYPERTENSIVE MEDICATION NOS [Concomitant]

REACTIONS (1)
  - ARTHRALGIA [None]
